FAERS Safety Report 7501687-7 (Version None)
Quarter: 2011Q2

REPORT INFORMATION
  Report Type: 
  Country: None (occurrence: None)
  Receive Date: 20110525
  Receipt Date: 20110518
  Transmission Date: 20111010
  Serious: Yes (Hospitalization)
  Sender: FDA-Public Use
  Company Number: US-BRISTOL-MYERS SQUIBB COMPANY-15509136

PATIENT
  Age: 38 Year
  Sex: Female
  Weight: 32 kg

DRUGS (29)
  1. AMOXICILLIN [Concomitant]
     Dosage: AMOXICILLIN TABS
     Route: 048
     Dates: start: 20101124
  2. ALLEGRA D 24 HOUR [Concomitant]
     Dosage: ALLEGRA-D 24 HOUR
     Dates: start: 20101019
  3. CARAFATE [Concomitant]
     Dosage: SUSPENSION
     Dates: start: 20101228
  4. PROCHLORPERAZINE MALEATE [Concomitant]
     Dosage: TABLET
     Dates: start: 20100831
  5. APREPITANT [Concomitant]
     Dosage: TAB
     Dates: start: 20100928
  6. DIPHENHYDRAMINE HCL [Concomitant]
     Dosage: 11JAN2011(SOLUTION)
     Dates: start: 20101221
  7. VICOPROFEN [Concomitant]
     Dosage: TAB
     Dates: start: 20101228
  8. AMBIEN [Concomitant]
     Dosage: TAB
     Dates: start: 20101228
  9. EMEND [Concomitant]
     Dosage: MISCELLANEOUS,EMEND TRI FOLD
     Dates: start: 20100831
  10. PALONOSETRON [Concomitant]
     Dosage: 19OCT2010,PALONOSETRON HCL(SOLUTION).
     Dates: start: 20100928
  11. ADRIAMYCIN PFS [Suspect]
     Indication: BREAST CANCER
     Dosage: CYCLE 6,DAY10,SOLUTION,INTERRUPTED + LAST ON 01DEC2010 (108MG) 60MG/M2
     Dates: start: 20100928
  12. ATENOLOL [Concomitant]
     Dosage: ATENOLOL TAB, 1 DF= 1 TAB OF 50MG
     Route: 048
  13. ACETAMINOPHEN W/ CODEINE [Concomitant]
     Dosage: TABLET
     Dates: start: 20100831
  14. ATIVAN [Concomitant]
     Dosage: TAB
     Dates: start: 20101019
  15. TRAMADOL HCL [Concomitant]
     Indication: PAIN
     Dosage: TABLET SOLUBLE,1 DF= 2 TABS
     Dates: start: 20101221
  16. METOCLOPRAMIDE HCL [Concomitant]
     Dosage: BED TIME,
     Route: 048
     Dates: start: 20101019
  17. RANITIDINE HCL [Concomitant]
     Dosage: 11JAN2011,SOLUTION
     Dates: start: 20101221
  18. CYTOXAN [Suspect]
     Indication: BREAST CANCER
     Dosage: INTERRUPTED ON 01DEC2010.SOLUTION,600MG/M2 RECENT ADMN.01-DEC-2010
     Dates: start: 20100928
  19. METFORMIN HCL [Concomitant]
     Dosage: TABLET
     Route: 048
  20. PROMETHAZINE HCL [Concomitant]
     Dosage: SUPPOSITORY
     Dates: start: 20101019
  21. EMLA [Concomitant]
     Dosage: CREAM
     Dates: start: 20100928
  22. ONDANSERTRON HYDROCHLORIDE [Concomitant]
     Dosage: TAB
     Dates: start: 20100831
  23. IXEMPRA KIT [Suspect]
     Indication: BREAST CANCER
     Dosage: SOLUTION  21DEC2010-11JAN2011:72MG(INTERRUPTED ON 11JAN2011),42MG/M2,INTER ON 17FEB11
     Route: 042
     Dates: start: 20101221
  24. ESOMEPRAZOLE MAGNESIUM [Concomitant]
     Dosage: CAPSULE,DELAYED RELEASE CAPSULE.
     Route: 048
     Dates: start: 20100923
  25. LISINOPRIL [Concomitant]
     Dosage: TABLET
     Route: 048
  26. VERAPAMIL HCL [Concomitant]
     Dosage: TABLET
     Route: 048
  27. DEXAMETHASONE SODIUM PHOSPHATE [Concomitant]
     Dosage: SOLUTION,01DEC2010
     Dates: start: 20100928
  28. TYLENOL W/ CODEINE NO. 3 [Concomitant]
     Dosage: EVERY 4 TO 6 HOUR
  29. ULTRAM [Concomitant]
     Indication: PAIN
     Dosage: EVERY 4 TO 6 HR
     Route: 048

REACTIONS (5)
  - DEHYDRATION [None]
  - HAEMOLYTIC ANAEMIA [None]
  - FEBRILE NEUTROPENIA [None]
  - FANCONI SYNDROME [None]
  - ANAEMIA [None]
